FAERS Safety Report 24119316 (Version 1)
Quarter: 2024Q3

REPORT INFORMATION
  Report Type: Spontaneous
  Country: JP (occurrence: JP)
  Receive Date: 20240722
  Receipt Date: 20240722
  Transmission Date: 20241016
  Serious: Yes (Death, Other)
  Sender: MERCK
  Company Number: JP-MSD-M2024-27844

PATIENT
  Sex: Male

DRUGS (6)
  1. KEYTRUDA [Suspect]
     Active Substance: PEMBROLIZUMAB
     Indication: Lip and/or oral cavity cancer
     Dosage: 200 MILLIGRAM, Q3W
     Route: 041
  2. KEYTRUDA [Suspect]
     Active Substance: PEMBROLIZUMAB
     Indication: PD-L1 positive cancer
  3. FLUOROURACIL [Concomitant]
     Active Substance: FLUOROURACIL
     Indication: Lip and/or oral cavity cancer
     Dosage: 1000 MILLIGRAM/SQ. METER, QD
     Route: 041
  4. FLUOROURACIL [Concomitant]
     Active Substance: FLUOROURACIL
     Indication: PD-L1 positive cancer
  5. CISPLATIN [Concomitant]
     Active Substance: CISPLATIN
     Indication: Lip and/or oral cavity cancer
     Dosage: UNK
     Route: 041
  6. CISPLATIN [Concomitant]
     Active Substance: CISPLATIN
     Indication: PD-L1 positive cancer

REACTIONS (1)
  - Malignant neoplasm progression [Fatal]
